FAERS Safety Report 6720209-1 (Version None)
Quarter: 2010Q2

REPORT INFORMATION
  Report Type: 
  Country: None (occurrence: None)
  Receive Date: 20100511
  Receipt Date: 20100427
  Transmission Date: 20101027
  Serious: Yes (Other)
  Sender: FDA-Public Use
  Company Number: IT-MYLANLABS-2010S1007306

PATIENT
  Sex: Male

DRUGS (3)
  1. ATENOLOL [Suspect]
     Indication: DRUG USE FOR UNKNOWN INDICATION
  2. INDAPAMIDE [Suspect]
  3. ENALAPRIL MALEATE [Suspect]

REACTIONS (2)
  - LOSS OF CONSCIOUSNESS [None]
  - URINARY INCONTINENCE [None]
